FAERS Safety Report 14214496 (Version 1)
Quarter: 2017Q4

REPORT INFORMATION
  Report Type: Spontaneous
  Country: US (occurrence: US)
  Receive Date: 20171122
  Receipt Date: 20171122
  Transmission Date: 20180321
  Serious: No
  Sender: FDA-Public Use
  Company Number: US-ROCHE-1882248

PATIENT

DRUGS (2)
  1. PULMOZYME [Suspect]
     Active Substance: DORNASE ALFA
     Indication: RENAL ARTERY THROMBOSIS
     Route: 013
  2. PULMOZYME [Suspect]
     Active Substance: DORNASE ALFA
     Indication: RENAL TRANSPLANT

REACTIONS (2)
  - No adverse event [Unknown]
  - Off label use [Unknown]
